FAERS Safety Report 25968215 (Version 2)
Quarter: 2025Q4

REPORT INFORMATION
  Report Type: Report from Study
  Country: CA (occurrence: CA)
  Receive Date: 20251028
  Receipt Date: 20251205
  Transmission Date: 20260118
  Serious: Yes (Other)
  Sender: BIOCON
  Company Number: CA-BIOCON BIOLOGICS LIMITED-BBL2025005877

PATIENT

DRUGS (1)
  1. FULPHILA [Suspect]
     Active Substance: PEGFILGRASTIM-JMDB
     Indication: Febrile neutropenia
     Dosage: UNK
     Route: 065
     Dates: start: 20250816

REACTIONS (3)
  - Transfusion [Unknown]
  - Blood test abnormal [Unknown]
  - Influenza [Unknown]

NARRATIVE: CASE EVENT DATE: 20251016
